FAERS Safety Report 9499369 (Version 1)
Quarter: 2013Q3

REPORT INFORMATION
  Report Type: Spontaneous
  Country: US (occurrence: US)
  Receive Date: 20130905
  Receipt Date: 20130905
  Transmission Date: 20140515
  Serious: No
  Sender: FDA-Public Use
  Company Number: US-B.I. PHARMACEUTICALS,INC./RIDGEFIELD-2013-BI-26309BP

PATIENT
  Age: 56 Year
  Sex: Male
  Weight: 81 kg

DRUGS (13)
  1. COMBIVENT [Suspect]
     Indication: CHRONIC OBSTRUCTIVE PULMONARY DISEASE
     Dosage: STRENGTH: 20 MCG / 100 MCG; DAILY DOSE: 40MCG/200MCG
     Route: 055
     Dates: start: 20130812
  2. HYDRALAZINE [Concomitant]
     Indication: HYPERTENSION
     Dosage: 20 MG
     Route: 048
  3. SIMVASTATIN [Concomitant]
     Indication: BLOOD CHOLESTEROL INCREASED
     Dosage: 5 MG
     Route: 048
  4. CLONIDINE [Concomitant]
     Indication: HYPERTENSION
     Dosage: 0.3 MG
     Route: 048
  5. ALPRAZOLAM [Concomitant]
     Indication: ANXIETY
     Dosage: 1.5 MG
     Route: 048
  6. ALPRAZOLAM [Concomitant]
     Indication: SCHIZOAFFECTIVE DISORDER
  7. TRAZODONE [Concomitant]
     Indication: SCHIZOAFFECTIVE DISORDER
     Dosage: 80 MG
     Route: 048
  8. OXYCODONE [Concomitant]
     Indication: BACK PAIN
     Dosage: 30 MG
     Route: 048
  9. OXYCODONE [Concomitant]
     Route: 048
  10. ATENOLOL [Concomitant]
     Indication: HYPERTENSION
     Dosage: 100 MG
     Route: 048
  11. OMEPRAZOLE [Concomitant]
     Indication: GASTROOESOPHAGEAL REFLUX DISEASE
     Dosage: 20 MG
     Route: 048
  12. MIRTAZAPINE [Concomitant]
     Indication: DEPRESSION
     Dosage: 10 MG
     Route: 048
  13. FLOMAX [Concomitant]
     Indication: BENIGN PROSTATIC HYPERPLASIA
     Route: 048

REACTIONS (2)
  - Agitation [Not Recovered/Not Resolved]
  - Blood pressure increased [Not Recovered/Not Resolved]
